FAERS Safety Report 6625587-X (Version None)
Quarter: 2010Q1

REPORT INFORMATION
  Report Type: 
  Country: None (occurrence: None)
  Receive Date: 20100223
  Receipt Date: 20091109
  Transmission Date: 20100710
  Serious: No
  Sender: FDA-Public Use
  Company Number: 8054478

PATIENT
  Sex: Male
  Weight: 117.9 kg

DRUGS (2)
  1. CERTOLIZUMAB PEGOL (UCB, INC) [Suspect]
     Indication: CROHN'S DISEASE
     Dosage: SUBCUTANEOUS
     Route: 058
     Dates: start: 20090901
  2. SANDOSTATIN [Concomitant]

REACTIONS (2)
  - ASTHENIA [None]
  - OEDEMA PERIPHERAL [None]
